FAERS Safety Report 14306349 (Version 3)
Quarter: 2018Q1

REPORT INFORMATION
  Report Type: Spontaneous
  Country: JP (occurrence: JP)
  Receive Date: 20171219
  Receipt Date: 20180322
  Transmission Date: 20180509
  Serious: Yes (Hospitalization, Other)
  Sender: FDA-Public Use
  Company Number: JP-ROCHE-2040791

PATIENT
  Age: 67 Year
  Sex: Female

DRUGS (3)
  1. TYKERB [Concomitant]
     Active Substance: LAPATINIB DITOSYLATE
     Indication: BREAST CANCER
     Dosage: DOSAGE IS UNCERTAIN.?REPORTED AS LAPATINIB TOSILATE HYDRATE.
     Route: 048
  2. OPIUM ALKALOIDS [Suspect]
     Active Substance: OPIUM
     Indication: PRODUCT USED FOR UNKNOWN INDICATION
     Dosage: DOSAGE IS UNCERTAIN
     Route: 065
  3. XELODA [Suspect]
     Active Substance: CAPECITABINE
     Indication: BREAST CANCER
     Dosage: DOSAGE IS UNCERTAIN.
     Route: 048

REACTIONS (4)
  - Respiratory failure [Unknown]
  - Malignant pleural effusion [Unknown]
  - Somnolence [Unknown]
  - Altered state of consciousness [Unknown]
